FAERS Safety Report 5586540-0 (Version None)
Quarter: 2008Q1

REPORT INFORMATION
  Report Type: 
  Country: None (occurrence: None)
  Receive Date: 20080110
  Receipt Date: 20071231
  Transmission Date: 20080703
  Serious: Yes (Other)
  Sender: FDA-Public Use
  Company Number: US-PURDUE-USA_2007_0030920

PATIENT
  Age: 44 Year
  Sex: Male

DRUGS (8)
  1. OXYCONTIN [Suspect]
     Indication: PAIN
     Dosage: 80 MG, QID
  2. OXYCONTIN [Suspect]
     Dosage: 40 MG, TID
  3. ANTIHYPERTENSIVES [Concomitant]
     Indication: HYPERTENSION
  4. VALIUM [Concomitant]
     Indication: PHARYNGEAL DISORDER
     Dosage: 10 MG, PRN
  5. CHOLESTEROL- AND TRIGLYCERIDE REDUCERS [Concomitant]
     Indication: BLOOD CHOLESTEROL INCREASED
  6. MARIJUANA [Concomitant]
     Indication: INSOMNIA
  7. PROTONIX [Concomitant]
     Indication: HIATUS HERNIA
  8. METHADONE HCL [Suspect]
     Indication: PAIN

REACTIONS (8)
  - DRUG DEPENDENCE [None]
  - DRUG WITHDRAWAL SYNDROME [None]
  - HYPERTENSION [None]
  - INSOMNIA [None]
  - MYOCARDIAL INFARCTION [None]
  - PAIN [None]
  - SUBSTANCE ABUSE [None]
  - VOMITING [None]
